FAERS Safety Report 8517080-4 (Version None)
Quarter: 2012Q3

REPORT INFORMATION
  Report Type: 
  Country: None (occurrence: None)
  Receive Date: 20120718
  Receipt Date: 20120712
  Transmission Date: 20120928
  Serious: Yes (Other)
  Sender: FDA-Public Use
  Company Number: CA-PFIZER INC-2012169003

PATIENT
  Age: 79 Year
  Sex: Male

DRUGS (1)
  1. NEURONTIN [Suspect]
     Dosage: 900 MG, 3X/DAY

REACTIONS (3)
  - PAIN [None]
  - SYNCOPE [None]
  - FALL [None]
